FAERS Safety Report 6923020-1 (Version None)
Quarter: 2010Q3

REPORT INFORMATION
  Report Type: 
  Country: None (occurrence: None)
  Receive Date: 20100813
  Receipt Date: 20100804
  Transmission Date: 20110219
  Serious: Yes (Hospitalization)
  Sender: FDA-Public Use
  Company Number: IT-PFIZER INC-2010083348

PATIENT
  Age: 78 Year
  Sex: Female

DRUGS (12)
  1. NORVASC [Suspect]
     Indication: HYPERTENSION
     Dosage: 5 MG, 1X/DAY
     Route: 048
     Dates: start: 20090405, end: 20100527
  2. LUVION [Concomitant]
  3. ESAPENT [Concomitant]
  4. LOPRESSOR [Concomitant]
  5. TORADIUR [Concomitant]
  6. SIVASTIN [Concomitant]
  7. NITRODERM [Concomitant]
  8. ASPIRIN [Concomitant]
  9. DILATREND [Concomitant]
  10. LIMPIDEX [Concomitant]
  11. HUMALOG [Concomitant]
  12. LANTUS [Concomitant]

REACTIONS (1)
  - PHOTODERMATOSIS [None]
